FAERS Safety Report 21927619 (Version 3)
Quarter: 2023Q1

REPORT INFORMATION
  Report Type: Report from Study
  Country: TR (occurrence: TR)
  Receive Date: 20230130
  Receipt Date: 20230323
  Transmission Date: 20230417
  Serious: Yes (Life-Threatening, Hospitalization)
  Sender: FDA-Public Use
  Company Number: TR-PFIZER INC-PV202300017400

PATIENT
  Age: 70 Year
  Sex: Male
  Weight: 59 kg

DRUGS (5)
  1. CARBOPLATIN [Suspect]
     Active Substance: CARBOPLATIN
     Indication: Non-small cell lung cancer
     Dosage: AUC 5 MG/ML X MIN Q3W (DAY 1 OF EACH 21-DAY CYCLE FOR 4 CYCLES)
     Route: 042
     Dates: start: 20220825, end: 20220825
  2. CARBOPLATIN [Suspect]
     Active Substance: CARBOPLATIN
     Dosage: AUC 3.75 MG/ML X MIN Q3W (DAY 1 OF EACH 21-DAY CYCLE FOR 4 CYCLES)
     Route: 042
     Dates: start: 20220915, end: 20221027
  3. PEMETREXED [Suspect]
     Active Substance: PEMETREXED
     Indication: Non-small cell lung cancer
     Dosage: 500 MILLIGRAM/SQ. METER Q3W (C1D1)
     Route: 042
     Dates: start: 20220825, end: 20220825
  4. PEMETREXED [Suspect]
     Active Substance: PEMETREXED
     Dosage: 375 MILLIGRAM/SQ. METER Q3W (DAY 1 OF EACH 21-DAY CYCLE)
     Route: 042
     Dates: start: 20220915
  5. INVESTIGATIONAL PRODUCT [Suspect]
     Active Substance: INVESTIGATIONAL PRODUCT
     Indication: Non-small cell lung cancer
     Dosage: Q3W (DAY 1 OF EACH 21-DAY CYCLE FOR UP TO 35 CYCLES)
     Route: 042
     Dates: start: 20220825

REACTIONS (3)
  - Platelet count decreased [Recovered/Resolved]
  - Platelet count decreased [Recovered/Resolved]
  - Febrile neutropenia [Recovered/Resolved]

NARRATIVE: CASE EVENT DATE: 20220901
